FAERS Safety Report 10151913 (Version 1)
Quarter: 2014Q2

REPORT INFORMATION
  Report Type: Spontaneous
  Country: US (occurrence: None)
  Receive Date: 20140501
  Receipt Date: 20140501
  Transmission Date: 20141212
  Serious: No
  Sender: FDA-Public Use
  Company Number: 1713747-2014-99954

PATIENT
  Age: 19 Year
  Sex: Male
  Weight: 53 kg

DRUGS (3)
  1. FRESENIUS DELFLEX DEXTROSE SOLUTION [Suspect]
     Indication: RENAL FAILURE CHRONIC
     Route: 048
  2. LIBERTY CYCLER [Concomitant]
  3. LIBERTY CYCLER CASSETTE [Concomitant]

REACTIONS (2)
  - Medical device complication [None]
  - Peritonitis bacterial [None]
